FAERS Safety Report 7487664-3 (Version None)
Quarter: 2011Q2

REPORT INFORMATION
  Report Type: 
  Country: None (occurrence: None)
  Receive Date: 20110518
  Receipt Date: 20091120
  Transmission Date: 20111010
  Serious: Yes (Other)
  Sender: FDA-Public Use
  Company Number: US-BAYER-200940905NA

PATIENT
  Sex: Male
  Weight: 66.667 kg

DRUGS (10)
  1. TRASYLOL [Suspect]
     Indication: CORONARY ARTERY BYPASS
  2. AVANDIA [Concomitant]
     Dosage: 8 MG, QD
  3. PROTAMINE SULFATE [Concomitant]
     Dosage: 510MG
     Route: 042
     Dates: start: 20040513
  4. RED BLOOD CELLS [Concomitant]
     Dosage: UNK
     Dates: start: 20040513
  5. ACETYLSALICYLIC ACID SRT [Concomitant]
     Dosage: 325 MG, QD
  6. ATENOLOL [Concomitant]
     Dosage: 50 MG, BID
  7. PLASMA [Concomitant]
     Dosage: UNK
     Dates: start: 20040513
  8. PLAVIX [Concomitant]
     Dosage: 75 MG, QD
  9. TRASYLOL [Suspect]
     Indication: AORTIC VALVE REPLACEMENT
     Dosage: TEST DOSE 200ML VIA BYPASS LOADING DOSE 200 ML FOLLOWED BY 50ML/HR INFUSION
     Route: 042
     Dates: start: 20040513, end: 20040513
  10. HEPARIN [Concomitant]
     Dosage: UNK
     Route: 042
     Dates: start: 20040513

REACTIONS (11)
  - RENAL INJURY [None]
  - ANXIETY [None]
  - UNEVALUABLE EVENT [None]
  - DEPRESSION [None]
  - INJURY [None]
  - FEAR [None]
  - PAIN [None]
  - MULTI-ORGAN FAILURE [None]
  - RENAL FAILURE [None]
  - ANHEDONIA [None]
  - DISABILITY [None]
